FAERS Safety Report 24189953 (Version 1)
Quarter: 2024Q3

REPORT INFORMATION
  Report Type: Spontaneous
  Country: CN (occurrence: CN)
  Receive Date: 20240808
  Receipt Date: 20240808
  Transmission Date: 20241017
  Serious: Yes (Other)
  Sender: RIBON THERAPEUTICS
  Company Number: CN-AstraZeneca-2024A172156

PATIENT

DRUGS (2)
  1. METOPROLOL SUCCINATE [Suspect]
     Active Substance: METOPROLOL SUCCINATE
     Indication: Heart rate abnormal
     Dosage: 23.75 MILLIGRAM, QD
     Route: 048
     Dates: start: 20240704
  2. DIGOXIN [Concomitant]
     Active Substance: DIGOXIN
     Indication: Heart rate abnormal
     Dosage: 0.125 MILLIGRAM, QD
     Route: 048
     Dates: start: 20240630, end: 20240705

REACTIONS (1)
  - Atrioventricular block complete [Recovering/Resolving]

NARRATIVE: CASE EVENT DATE: 20240705
